FAERS Safety Report 17890192 (Version 1)
Quarter: 2020Q2

REPORT INFORMATION
  Report Type: Spontaneous
  Country: NL (occurrence: FR)
  Receive Date: 20200612
  Receipt Date: 20200612
  Transmission Date: 20200714
  Serious: Yes (Other)
  Sender: FDA-Public Use
  Company Number: FR-FRESENIUS KABI-FK202005731

PATIENT
  Age: 64 Year
  Sex: Male
  Weight: 80 kg

DRUGS (20)
  1. AMIKACIN SULFATE. [Suspect]
     Active Substance: AMIKACIN SULFATE
     Indication: SEPTIC SHOCK
     Dosage: 2.5 G TOTAL
     Route: 042
     Dates: start: 20200326, end: 20200326
  2. PREDNISOLONE. [Suspect]
     Active Substance: PREDNISOLONE
     Indication: PROPHYLAXIS AGAINST TRANSPLANT REJECTION
     Dosage: 20 MG DAILY
     Route: 048
     Dates: start: 20200323, end: 20200323
  3. HEPARIN CALCIUM [Suspect]
     Active Substance: HEPARIN CALCIUM
     Indication: THROMBOSIS PROPHYLAXIS
     Dosage: UNK
     Route: 058
     Dates: start: 20200320
  4. SUFENTANIL [Suspect]
     Active Substance: SUFENTANIL
     Indication: SEDATIVE THERAPY
     Dosage: UNK
     Route: 042
     Dates: start: 20200323
  5. FLUDROCORTISONE ACETATE. [Suspect]
     Active Substance: FLUDROCORTISONE ACETATE
     Indication: PRODUCT SUBSTITUTION
     Dosage: 50 MICROGRAMMES, SCORED TABLET
     Route: 042
     Dates: start: 20200326
  6. ACETYLSALICYLATE LYSINE [Suspect]
     Active Substance: ASPIRIN DL-LYSINE
     Indication: PROPHYLAXIS
     Dosage: 1 DF DAILY
     Route: 048
  7. HYDROCORTISONE SODIUM SUCCINATE [Suspect]
     Active Substance: HYDROCORTISONE SODIUM SUCCINATE
     Indication: PRODUCT SUBSTITUTION
     Dosage: 100 MG, INJECTABLE PREPARATION
     Route: 042
     Dates: start: 20200326
  8. MYCOPHENOLATE MOFETIL. [Suspect]
     Active Substance: MYCOPHENOLATE MOFETIL
     Indication: PROPHYLAXIS AGAINST TRANSPLANT REJECTION
     Dosage: 1000 MG DAILY
     Route: 048
     Dates: start: 20200323
  9. MIDAZOLAM HYDROCHLORIDE. [Suspect]
     Active Substance: MIDAZOLAM HYDROCHLORIDE
     Indication: SEDATIVE THERAPY
     Dosage: UNK
     Route: 042
     Dates: start: 20200323
  10. PANCREATIN [Suspect]
     Active Substance: PANCRELIPASE
     Indication: PANCREATIC FAILURE
     Dosage: 2 DF DAILY (25 000 U, ENTERIC-COATED GRANULES IN CAPSULE)
     Route: 048
  11. PANTOPRAZOLE SODIUM SESQUIHYDRATE [Suspect]
     Active Substance: PANTOPRAZOLE SODIUM
     Indication: PRODUCT USED FOR UNKNOWN INDICATION
     Dosage: UNK
     Route: 042
  12. SPIRAMYCIN [Suspect]
     Active Substance: SPIRAMYCIN
     Indication: COVID-19 PNEUMONIA
     Dosage: 3 DF DAILY (3 MILLIONS U I, COATED TABLET)
     Route: 048
     Dates: start: 20200321, end: 20200326
  13. PIPERACILLIN SODIUM/TAZOBACTAM SODIUM [Suspect]
     Active Substance: PIPERACILLIN SODIUM\TAZOBACTAM SODIUM
     Indication: SEPTIC SHOCK
     Dosage: 1 DF IN TOTAL
     Route: 042
     Dates: start: 20200326, end: 20200326
  14. CISATRACURIUM BESILATE [Suspect]
     Active Substance: CISATRACURIUM BESYLATE
     Indication: SEDATIVE THERAPY
     Dosage: UNK
     Route: 042
     Dates: start: 20200323
  15. AMIODARONE HYDROCHLORIDE. [Suspect]
     Active Substance: AMIODARONE HYDROCHLORIDE
     Indication: ATRIAL FIBRILLATION
     Dosage: 1 DF TOTAL (150 MG/3 ML, SOLUTION FOR INJECTION IN VIAL (INTRAVENOUS))
     Route: 042
     Dates: start: 20200326, end: 20200326
  16. CEFTRIAXONE. [Suspect]
     Active Substance: CEFTRIAXONE
     Indication: COVID-19 PNEUMONIA
     Dosage: 1 DF DAILY (1 G, POWDER FOR SOLUTION FOR INJECTION)
     Route: 042
     Dates: start: 20200321, end: 20200326
  17. LINEZOLID KABI [Suspect]
     Active Substance: LINEZOLID
     Indication: SEPTIC SHOCK
     Dosage: 600 MG TOTAL
     Route: 042
     Dates: start: 20200326, end: 20200326
  18. RITONAVIR/LOPINAVIR [Suspect]
     Active Substance: LOPINAVIR\RITONAVIR
     Indication: COVID-19 PNEUMONIA
     Dosage: 4 DF DAILY (200 MG/50 MG, COATED TABLET)
     Route: 048
     Dates: start: 20200323
  19. ATORVASTATIN CALCIUM. [Suspect]
     Active Substance: ATORVASTATIN CALCIUM
     Indication: DYSLIPIDAEMIA
     Dosage: 1 DF DAILY (10 MG, COATED TABLET)
     Route: 048
     Dates: end: 20200323
  20. NOREPINEPHRINE BITARTRATE. [Suspect]
     Active Substance: NOREPINEPHRINE BITARTRATE
     Indication: SEPSIS
     Dosage: UNK
     Route: 042
     Dates: start: 20200323

REACTIONS (2)
  - Rhabdomyolysis [Unknown]
  - Hypertransaminasaemia [Unknown]

NARRATIVE: CASE EVENT DATE: 20200326
